FAERS Safety Report 7912928-6 (Version None)
Quarter: 2011Q4

REPORT INFORMATION
  Report Type: 
  Country: None (occurrence: None)
  Receive Date: 20111114
  Receipt Date: 20111109
  Transmission Date: 20120403
  Serious: No
  Sender: FDA-Public Use
  Company Number: US-PFIZER INC-2011142950

PATIENT
  Sex: Female
  Weight: 61.224 kg

DRUGS (1)
  1. IBUPROFEN (ADVIL) [Suspect]
     Indication: MUSCLE STRAIN
     Dosage: 200 MG, 2X/DAY
     Route: 048
     Dates: start: 20110623, end: 20110623

REACTIONS (2)
  - HYPOAESTHESIA ORAL [None]
  - HYPERHIDROSIS [None]
